FAERS Safety Report 5316970-3 (Version None)
Quarter: 2007Q2

REPORT INFORMATION
  Report Type: 
  Country: None (occurrence: None)
  Receive Date: 20070504
  Receipt Date: 20070327
  Transmission Date: 20071010
  Serious: Yes (Life-Threatening, Hospitalization, Disabling)
  Sender: FDA-Public Use
  Company Number: JP-PFIZER INC-2007011460

PATIENT
  Sex: Male

DRUGS (7)
  1. LIPITOR [Suspect]
     Indication: HYPERLIPIDAEMIA
     Dosage: DAILY DOSE:10MG
     Route: 048
     Dates: start: 20041104, end: 20070205
  2. CARDENALIN [Suspect]
     Indication: HYPERTENSION
     Dosage: DAILY DOSE:2MG
     Route: 048
     Dates: start: 20050222, end: 20070205
  3. CAPTOPRIL [Suspect]
     Indication: HYPERTENSION
     Dosage: DAILY DOSE:12.5MG
     Route: 048
     Dates: start: 20060915, end: 20070205
  4. HARNAL [Concomitant]
     Indication: BENIGN PROSTATIC HYPERPLASIA
     Dosage: DAILY DOSE:.2MG
     Route: 048
  5. NIFEDIPINE [Concomitant]
     Indication: HYPERTENSION
     Dosage: DAILY DOSE:40MG
     Route: 048
  6. LASIX [Concomitant]
     Indication: HYPERTENSION
     Dosage: DAILY DOSE:40MG
     Route: 048
  7. HALCION [Concomitant]
     Indication: INSOMNIA
     Route: 048
     Dates: start: 20040106

REACTIONS (1)
  - HYPOGLYCAEMIA [None]
